FAERS Safety Report 13075692 (Version 1)
Quarter: 2016Q4

REPORT INFORMATION
  Report Type: Spontaneous
  Country: JP (occurrence: JP)
  Receive Date: 20161230
  Receipt Date: 20161230
  Transmission Date: 20170207
  Serious: Yes (Hospitalization)
  Sender: FDA-Public Use
  Company Number: JP-TEVA-2016-JP-001518J

PATIENT
  Age: 30 Year
  Sex: Female

DRUGS (4)
  1. SOSEGON [Concomitant]
     Active Substance: PENTAZOCINE
     Indication: ANAESTHESIA PROCEDURE
     Dosage: 30 MILLIGRAM DAILY;
     Route: 042
     Dates: start: 20160624, end: 20160624
  2. DIAZEPAM INJECTION 10MG ^TAIYO^ [Suspect]
     Active Substance: DIAZEPAM
     Indication: ANAESTHESIA PROCEDURE
     Dosage: 5 MILLIGRAM DAILY; SINGLE INJECTION
     Route: 042
     Dates: start: 20160624, end: 20160624
  3. SOLACET F [Concomitant]
     Indication: ANAESTHESIA PROCEDURE
     Route: 041
     Dates: start: 20160624, end: 20160624
  4. ATROPINE SULFATE HYDRATE [Concomitant]
     Active Substance: ATROPINE SULFATE
     Indication: ANAESTHESIA PROCEDURE
     Dosage: .5 MILLIGRAM DAILY;
     Route: 042
     Dates: start: 20160624, end: 20160624

REACTIONS (1)
  - Depressed level of consciousness [Recovered/Resolved]

NARRATIVE: CASE EVENT DATE: 20160624
